FAERS Safety Report 7169821-9 (Version None)
Quarter: 2010Q4

REPORT INFORMATION
  Report Type: 
  Country: None (occurrence: None)
  Receive Date: 20101214
  Receipt Date: 20101214
  Transmission Date: 20110411
  Serious: Yes (Other)
  Sender: FDA-Public Use
  Company Number: None

PATIENT
  Sex: Female
  Weight: 104.3273 kg

DRUGS (1)
  1. ROLAIDS [Suspect]
     Indication: DYSPEPSIA
     Dosage: 2 CHEWS 3-4 TIMES DAILY PO
     Route: 048
     Dates: start: 20080201, end: 20090413

REACTIONS (4)
  - ABDOMINAL PAIN LOWER [None]
  - APPENDICITIS [None]
  - FOREIGN BODY [None]
  - NAUSEA [None]
